FAERS Safety Report 23895488 (Version 1)
Quarter: 2024Q2

REPORT INFORMATION
  Report Type: Spontaneous
  Country: GB (occurrence: GB)
  Receive Date: 20240524
  Receipt Date: 20240524
  Transmission Date: 20240716
  Serious: Yes (Hospitalization, Other)
  Sender: FDA-Public Use
  Company Number: GB-RANBAXY-2011US-43568

PATIENT
  Age: 73 Year
  Sex: Female

DRUGS (7)
  1. LANSOPRAZOLE [Suspect]
     Active Substance: LANSOPRAZOLE
     Indication: Barrett^s oesophagus
     Dosage: 30-60 MG DAILY
     Route: 065
     Dates: start: 1994
  2. OMEPRAZOLE [Suspect]
     Active Substance: DONEPEZIL HYDROCHLORIDE\OMEPRAZOLE\OMEPRAZOLE MAGNESIUM
     Indication: Barrett^s oesophagus
     Dosage: 20-40 MG DAILY
     Route: 065
     Dates: start: 1999
  3. ESOMEPRAZOLE [Suspect]
     Active Substance: ESOMEPRAZOLE
     Indication: Barrett^s oesophagus
     Dosage: 20 MG, QD
     Route: 065
     Dates: start: 2008, end: 2008
  4. PANTOPRAZOLE [Suspect]
     Active Substance: PANTOPRAZOLE
     Indication: Barrett^s oesophagus
     Dosage: 40 MG, QD
     Route: 065
     Dates: start: 2008, end: 2008
  5. OMEPRAZOLE [Suspect]
     Active Substance: DONEPEZIL HYDROCHLORIDE\OMEPRAZOLE\OMEPRAZOLE MAGNESIUM
     Indication: Barrett^s oesophagus
     Dosage: 40 MG, QD
     Route: 065
     Dates: start: 2008, end: 2008
  6. FUROSEMIDE [Concomitant]
     Active Substance: FUROSEMIDE
     Indication: Product used for unknown indication
     Dosage: 20-40 MG
     Route: 065
     Dates: start: 2005
  7. Bendroflumthiazide [Concomitant]
     Indication: Hypertension
     Dosage: 2.5 MG, QD
     Route: 065
     Dates: start: 2001

REACTIONS (13)
  - Chest pain [Recovered/Resolved]
  - Abdominal pain [Recovered/Resolved]
  - Muscle spasms [Recovered/Resolved]
  - Hypomagnesaemia [Recovered/Resolved]
  - Hypocalcaemia [Recovered/Resolved]
  - Arthralgia [Recovered/Resolved]
  - Circulatory collapse [Recovered/Resolved]
  - Tetany [Recovered/Resolved]
  - Paraesthesia [Recovered/Resolved]
  - Lethargy [Recovered/Resolved]
  - Balance disorder [Recovered/Resolved]
  - Fall [Recovered/Resolved]
  - Rash pruritic [Unknown]

NARRATIVE: CASE EVENT DATE: 20050101
